FAERS Safety Report 13441673 (Version 1)
Quarter: 2017Q2

REPORT INFORMATION
  Report Type: Spontaneous
  Country: FR (occurrence: FR)
  Receive Date: 20170413
  Receipt Date: 20170413
  Transmission Date: 20170830
  Serious: Yes (Other)
  Sender: FDA-Public Use
  Company Number: FR-SUN PHARMACEUTICAL INDUSTRIES LTD-2017RR-137950

PATIENT
  Sex: Female

DRUGS (15)
  1. VALPROATE DE SODIUM RPG LP [Suspect]
     Active Substance: VALPROATE SODIUM
     Dosage: UNK
     Route: 065
     Dates: start: 20090106
  2. VALPROATE DE SODIUM RPG LP [Suspect]
     Active Substance: VALPROATE SODIUM
     Dosage: 1 G, DAILY
     Route: 065
     Dates: start: 20080912
  3. VALPROATE DE SODIUM RPG LP [Suspect]
     Active Substance: VALPROATE SODIUM
     Dosage: 1 G, DAILY
     Route: 065
     Dates: start: 20080930
  4. VALPROATE DE SODIUM RPG LP [Suspect]
     Active Substance: VALPROATE SODIUM
     Dosage: UNK
     Route: 065
     Dates: start: 20081021
  5. DEPAKINE [Suspect]
     Active Substance: VALPROATE SODIUM
     Indication: EPILEPSY
     Dosage: UNK
     Route: 065
     Dates: start: 20080708
  6. VALPROATE DE SODIUM RPG LP [Suspect]
     Active Substance: VALPROATE SODIUM
     Indication: EPILEPSY
     Dosage: UNK
     Route: 065
     Dates: start: 20080708
  7. DEPAKINE [Suspect]
     Active Substance: VALPROATE SODIUM
     Dosage: UNK
     Route: 065
     Dates: start: 20081021
  8. DEPAKINE [Suspect]
     Active Substance: VALPROATE SODIUM
     Dosage: 1 G, DAILY
     Route: 065
     Dates: start: 20080930
  9. DEPAKINE [Suspect]
     Active Substance: VALPROATE SODIUM
     Dosage: UNK
     Route: 065
     Dates: start: 20090107
  10. FOLIC ACID. [Concomitant]
     Active Substance: FOLIC ACID
     Indication: PRODUCT USED FOR UNKNOWN INDICATION
     Dosage: 5 MG, UNK
     Route: 065
     Dates: start: 20060123
  11. DEPAKINE [Suspect]
     Active Substance: VALPROATE SODIUM
     Dosage: 1 G, DAILY
     Route: 065
     Dates: start: 20081127
  12. VALPROATE DE SODIUM RPG LP [Suspect]
     Active Substance: VALPROATE SODIUM
     Dosage: UNK
     Route: 065
     Dates: start: 20090107
  13. DEPAKINE [Suspect]
     Active Substance: VALPROATE SODIUM
     Dosage: UNK
     Route: 065
     Dates: start: 20090106
  14. VALPROATE DE SODIUM RPG LP [Suspect]
     Active Substance: VALPROATE SODIUM
     Dosage: 1 G, DAILY
     Route: 065
     Dates: start: 20081127
  15. DEPAKINE [Suspect]
     Active Substance: VALPROATE SODIUM
     Dosage: 1 G, DAILY
     Route: 065
     Dates: start: 20080912

REACTIONS (4)
  - Maternal exposure during pregnancy [None]
  - Premature labour [Unknown]
  - Exposure during pregnancy [Unknown]
  - Caesarean section [None]
